FAERS Safety Report 5965699-7 (Version None)
Quarter: 2008Q4

REPORT INFORMATION
  Report Type: 
  Country: None (occurrence: None)
  Receive Date: 20081125
  Receipt Date: 20081117
  Transmission Date: 20090506
  Serious: Yes (Death)
  Sender: FDA-Public Use
  Company Number: A0757967A

PATIENT
  Age: 78 Year
  Sex: Male
  Weight: 72.7 kg

DRUGS (9)
  1. AVANDIA [Suspect]
     Dosage: 8MG PER DAY
     Route: 048
     Dates: start: 20040624, end: 20060918
  2. METFORMIN HCL [Concomitant]
  3. GLUCOTROL [Concomitant]
  4. LASIX [Concomitant]
  5. VICODIN [Concomitant]
  6. CREON [Concomitant]
  7. MULTI-VITAMIN [Concomitant]
  8. DIGOXIN [Concomitant]
  9. LOPID [Concomitant]

REACTIONS (3)
  - CARDIAC DEATH [None]
  - CORONARY ARTERY DISEASE [None]
  - MYOCARDIAL INFARCTION [None]
